FAERS Safety Report 13684278 (Version 1)
Quarter: 2017Q2

REPORT INFORMATION
  Report Type: Spontaneous
  Country: US (occurrence: US)
  Receive Date: 20170623
  Receipt Date: 20170623
  Transmission Date: 20170830
  Serious: No
  Sender: FDA-Public Use
  Company Number: US-ASTELLAS-2017US013967

PATIENT
  Age: 82 Year
  Sex: Female

DRUGS (2)
  1. VESICARE [Suspect]
     Active Substance: SOLIFENACIN SUCCINATE
     Dosage: UNK, ONCE DAILY
     Route: 065
  2. VESICARE [Suspect]
     Active Substance: SOLIFENACIN SUCCINATE
     Indication: URINARY INCONTINENCE
     Dosage: UNK, ONCE DAILY (ONE IN MORNING AT BREAKFAST)
     Route: 065

REACTIONS (4)
  - Dry mouth [Unknown]
  - Feeling abnormal [Unknown]
  - Drug dose omission [Unknown]
  - Somnolence [Unknown]
